FAERS Safety Report 21735941 (Version 1)
Quarter: 2022Q4

REPORT INFORMATION
  Report Type: Spontaneous
  Country: US (occurrence: US)
  Receive Date: 20221215
  Receipt Date: 20221215
  Transmission Date: 20230113
  Serious: No
  Sender: FDA-Public Use
  Company Number: US-PFIZER INC-202201362016

PATIENT
  Age: 83 Year
  Sex: Female

DRUGS (2)
  1. PREMARIN [Suspect]
     Active Substance: ESTROGENS, CONJUGATED
     Indication: Cyst
     Dosage: UNK (THREE TIMES A WEEK FOR THREE WEEKS)
     Dates: start: 202211
  2. XANAX [Concomitant]
     Active Substance: ALPRAZOLAM
     Dosage: UNK (XANAX 0.5MG, TAKES A PIECE AT A TIME AND NOT THE WHOLE ONE)

REACTIONS (10)
  - Headache [Unknown]
  - Abdominal discomfort [Unknown]
  - Nausea [Unknown]
  - Burning sensation [Unknown]
  - Dizziness [Unknown]
  - Malaise [Unknown]
  - Fall [Unknown]
  - Off label use [Unknown]
  - Off label use [Unknown]
  - Drug effective for unapproved indication [Unknown]

NARRATIVE: CASE EVENT DATE: 20220101
